FAERS Safety Report 16700252 (Version 1)
Quarter: 2019Q3

REPORT INFORMATION
  Report Type: Spontaneous
  Country: US (occurrence: US)
  Receive Date: 20190814
  Receipt Date: 20190814
  Transmission Date: 20191004
  Serious: Yes (Hospitalization)
  Sender: FDA-Public Use
  Company Number: US-DENDREON PHARMACEUTICAL LLC-2019DEN000303

PATIENT

DRUGS (5)
  1. PROVENGE [Suspect]
     Active Substance: SIPULEUCEL-T
     Indication: PROSTATE CANCER METASTATIC
     Dosage: DOSE #1
     Route: 042
     Dates: start: 20190712, end: 20190712
  2. XGEVA [Concomitant]
     Active Substance: DENOSUMAB
  3. XTANDI [Concomitant]
     Active Substance: ENZALUTAMIDE
  4. ECOTRIN [Concomitant]
     Active Substance: ASPIRIN
  5. FIRMAGON [Concomitant]
     Active Substance: DEGARELIX ACETATE

REACTIONS (1)
  - Streptococcal bacteraemia [Recovering/Resolving]

NARRATIVE: CASE EVENT DATE: 20190728
